FAERS Safety Report 18590105 (Version 1)
Quarter: 2020Q4

REPORT INFORMATION
  Report Type: Spontaneous
  Country: US (occurrence: US)
  Receive Date: 20201208
  Receipt Date: 20201208
  Transmission Date: 20210114
  Serious: No
  Sender: FDA-Public Use
  Company Number: None

PATIENT
  Age: 41 Year
  Sex: Female

DRUGS (1)
  1. STELARA [Suspect]
     Active Substance: USTEKINUMAB
     Indication: COLITIS ULCERATIVE
     Dosage: OTHER FREQUENCY:EVERY 8 WEEKS ;?
     Route: 058
     Dates: start: 202008

REACTIONS (2)
  - Injury associated with device [None]
  - Device physical property issue [None]

NARRATIVE: CASE EVENT DATE: 202010
